FAERS Safety Report 25251841 (Version 1)
Quarter: 2025Q2

REPORT INFORMATION
  Report Type: Spontaneous
  Country: US (occurrence: US)
  Receive Date: 20250429
  Receipt Date: 20250429
  Transmission Date: 20250716
  Serious: No
  Sender: CALLIDITAS THERAPEUTICS AB
  Company Number: US-Calliditas-2025CAL01113

PATIENT
  Age: 43 Year
  Sex: Male

DRUGS (3)
  1. TARPEYO [Suspect]
     Active Substance: BUDESONIDE
     Indication: IgA nephropathy
     Route: 048
     Dates: start: 20250302
  2. PROPRANOLOL [Concomitant]
     Active Substance: PROPRANOLOL HYDROCHLORIDE
  3. CLOMIDIN [CLOMIFENE CITRATE] [Concomitant]

REACTIONS (3)
  - Flushing [Not Recovered/Not Resolved]
  - Headache [Unknown]
  - Blood pressure increased [Not Recovered/Not Resolved]
